FAERS Safety Report 7595078-0 (Version None)
Quarter: 2011Q2

REPORT INFORMATION
  Report Type: 
  Country: None (occurrence: None)
  Receive Date: 20110620
  Receipt Date: 20110311
  Transmission Date: 20111010
  Serious: Yes (Other)
  Sender: FDA-Public Use
  Company Number: UTC-005692

PATIENT
  Age: 64 Year
  Sex: Male
  Weight: 75.8 kg

DRUGS (2)
  1. TYVASO [Suspect]
     Indication: PULMONARY HYPERTENSION
     Dosage: 240 MCG (60 MCG, 4 IN 1 D), INHALATION
     Route: 055
  2. REVATIO [Concomitant]

REACTIONS (1)
  - ATRIAL FLUTTER [None]
